FAERS Safety Report 4627665-3 (Version None)
Quarter: 2005Q2

REPORT INFORMATION
  Report Type: 
  Country: None (occurrence: None)
  Receive Date: 20050401
  Receipt Date: 20050318
  Transmission Date: 20051028
  Serious: Yes (Other)
  Sender: FDA-Public Use
  Company Number: 200503IM000089

PATIENT
  Age: 57 Year
  Sex: Female

DRUGS (3)
  1. ADVAFERON (A643_INTERFERON ALFACON-1) [Suspect]
     Indication: HEPATITIS C
     Dosage: 12 MIU, QD, SUBCUTANEOUS
     Route: 058
     Dates: start: 20030227, end: 20040206
  2. INSULIN HUMAN [Concomitant]
  3. MAGNESIUM OXIDE [Concomitant]

REACTIONS (3)
  - ANTIBODY TEST ABNORMAL [None]
  - BLOOD GLUCOSE ABNORMAL [None]
  - DIABETES MELLITUS INSULIN-DEPENDENT [None]
